FAERS Safety Report 4683133-4 (Version None)
Quarter: 2005Q2

REPORT INFORMATION
  Report Type: 
  Country: None (occurrence: None)
  Receive Date: 20050602
  Receipt Date: 20050307
  Transmission Date: 20051028
  Serious: No
  Sender: FDA-Public Use
  Company Number: USA050392597

PATIENT
  Age: 68 Year
  Sex: Female
  Weight: 82 kg

DRUGS (3)
  1. CYMBALTA [Suspect]
     Dosage: 30 MG DAY
     Dates: start: 20050304, end: 20050306
  2. ATENOLOL [Concomitant]
  3. ZOCOR(SIMVASTATIN RATIOPHARM) [Concomitant]

REACTIONS (6)
  - CHEST PAIN [None]
  - CONSTIPATION [None]
  - EPISTAXIS [None]
  - FATIGUE [None]
  - NAUSEA [None]
  - PAIN IN EXTREMITY [None]
